FAERS Safety Report 6410165-8 (Version None)
Quarter: 2009Q4

REPORT INFORMATION
  Report Type: 
  Country: None (occurrence: None)
  Receive Date: 20091022
  Receipt Date: 20091020
  Transmission Date: 20100525
  Serious: Yes (Other)
  Sender: FDA-Public Use
  Company Number: US-B.I. PHARMACEUTICALS,INC./RIDGEFIELD-2009-BP-11275BP

PATIENT
  Age: 67 Year
  Sex: Female

DRUGS (7)
  1. CLONIDINE HCL [Suspect]
     Indication: HYPERTENSION
     Route: 048
     Dates: start: 20090101, end: 20090601
  2. THYROID TAB [Concomitant]
     Indication: HYPOTHYROIDISM
     Dosage: 60 MG
  3. LISINOPRIL [Concomitant]
     Dosage: 20 MG
  4. LABETALOL HCL [Concomitant]
     Dosage: 200 MG
  5. SIMVASTATIN [Concomitant]
     Dosage: 40 MG
  6. MAXZIDE [Concomitant]
     Dosage: 25 MG
  7. SERTRALINE HCT [Concomitant]
     Dosage: 25 MG

REACTIONS (2)
  - CEREBROVASCULAR ACCIDENT [None]
  - HYPERTENSION [None]
